FAERS Safety Report 23855174 (Version 1)
Quarter: 2024Q2

REPORT INFORMATION
  Report Type: Spontaneous
  Country: US (occurrence: US)
  Receive Date: 20240514
  Receipt Date: 20240514
  Transmission Date: 20240716
  Serious: No
  Sender: FDA-Public Use
  Company Number: US-SA-SAC20240508000617

PATIENT
  Sex: Male
  Weight: 54 kg

DRUGS (11)
  1. DUPIXENT [Suspect]
     Active Substance: DUPILUMAB
     Indication: Dermatitis
     Dosage: 200 MG, QOW
     Route: 058
  2. DUPIXENT [Suspect]
     Active Substance: DUPILUMAB
     Dosage: 200 MG, Q4W
     Route: 058
  3. EUCRISA [Concomitant]
     Active Substance: CRISABOROLE
  4. DESONIDE [Concomitant]
     Active Substance: DESONIDE
  5. HYDROXYZINE [Concomitant]
     Active Substance: HYDROXYZINE HYDROCHLORIDE
  6. MOMETASONE [Concomitant]
     Active Substance: MOMETASONE
  7. MUPIROCIN [Concomitant]
     Active Substance: MUPIROCIN
  8. PREDNISONE [Concomitant]
     Active Substance: PREDNISONE
  9. VANICREAM [Concomitant]
     Active Substance: TITANIUM DIOXIDE\ZINC OXIDE
  10. TRIAMCINOLONE [Concomitant]
     Active Substance: TRIAMCINOLONE
  11. TACROLIMUS [Concomitant]
     Active Substance: TACROLIMUS

REACTIONS (2)
  - Eczema [Unknown]
  - Product use in unapproved indication [Unknown]
